FAERS Safety Report 5115564-2 (Version None)
Quarter: 2006Q3

REPORT INFORMATION
  Report Type: 
  Country: None (occurrence: None)
  Receive Date: 20060927
  Receipt Date: 20060911
  Transmission Date: 20061208
  Serious: Yes (Other)
  Sender: FDA-Public Use
  Company Number: FR-ABBOTT-06P-056-0343945-00

PATIENT
  Sex: Female
  Weight: 61 kg

DRUGS (7)
  1. HUMIRA [Suspect]
     Indication: POLYARTHRITIS
     Route: 058
     Dates: start: 20030101
  2. TENOXICAM [Concomitant]
     Indication: POLYARTHRITIS
     Route: 048
     Dates: start: 20030101
  3. PANTOPRAZOLE SODIUM [Concomitant]
     Indication: POLYARTHRITIS
     Route: 048
     Dates: start: 20030101
  4. PREDNISONE [Concomitant]
     Indication: POLYARTHRITIS
     Dates: start: 20030101
  5. DI-GESIC [Concomitant]
     Indication: POLYARTHRITIS
     Route: 048
     Dates: start: 20030101
  6. METHOTREXATE [Concomitant]
     Indication: POLYARTHRITIS
     Route: 048
     Dates: start: 20030101
  7. CALCIUM VITAMIN D3 [Concomitant]
     Indication: POLYARTHRITIS
     Dates: start: 20020101

REACTIONS (1)
  - EPISCLERITIS [None]
